FAERS Safety Report 9242829 (Version 1)
Quarter: 2013Q2

REPORT INFORMATION
  Report Type: Spontaneous
  Country: US (occurrence: US)
  Receive Date: 20130419
  Receipt Date: 20130419
  Transmission Date: 20140414
  Serious: No
  Sender: FDA-Public Use
  Company Number: US-BAYER-2013-047676

PATIENT
  Age: 79 Year
  Sex: Male
  Weight: 70.3 kg

DRUGS (5)
  1. ALEVE LIQUID GELS [Suspect]
     Indication: ARTHRITIS
     Dosage: 1 DF, QD
     Route: 048
     Dates: start: 201304, end: 201304
  2. ALEVE TABLET [Suspect]
     Indication: ARTHRITIS
     Dosage: 2 DF, QD
     Route: 048
     Dates: start: 2012
  3. CLOPIDOGREL [Concomitant]
  4. CENTRUM SILVER [Concomitant]
  5. ROSUVASTATIN CALCIUM [Concomitant]

REACTIONS (4)
  - Foreign body [Recovered/Resolved]
  - Throat irritation [Recovered/Resolved]
  - Vomiting [Recovered/Resolved]
  - Incorrect drug administration duration [None]
